FAERS Safety Report 24876323 (Version 1)
Quarter: 2025Q1

REPORT INFORMATION
  Report Type: Report from Study
  Country: ZA (occurrence: ZA)
  Receive Date: 20250123
  Receipt Date: 20250123
  Transmission Date: 20250409
  Serious: No
  Sender: ROCHE
  Company Number: ZA-ROCHE-10000183408

PATIENT
  Age: 56 Year
  Sex: Male

DRUGS (1)
  1. OCREVUS [Suspect]
     Active Substance: OCRELIZUMAB
     Indication: Primary progressive multiple sclerosis
     Dosage: THEREAFTER EVERY 6MONTHS
     Route: 042

REACTIONS (6)
  - Multiple sclerosis [Unknown]
  - Demyelination [Unknown]
  - Paranasal sinus mucosal hypertrophy [Unknown]
  - Exostosis [Unknown]
  - Spinal stenosis [Unknown]
  - Haemangioma [Unknown]
